FAERS Safety Report 6820965-8 (Version None)
Quarter: 2010Q3

REPORT INFORMATION
  Report Type: 
  Country: None (occurrence: None)
  Receive Date: 20100707
  Receipt Date: 20070807
  Transmission Date: 20110219
  Serious: No
  Sender: FDA-Public Use
  Company Number: US-PFIZER INC-2007065340

PATIENT
  Sex: Male
  Weight: 24.04 kg

DRUGS (5)
  1. SERTRALINE [Suspect]
     Indication: ANXIETY
     Dates: start: 20060101, end: 20070802
  2. SERTRALINE [Suspect]
     Indication: FEAR
  3. SERTRALINE [Suspect]
     Indication: NERVOUSNESS
  4. ATTENTA [Concomitant]
     Indication: ATTENTION DEFICIT/HYPERACTIVITY DISORDER
  5. METHYLPHENIDATE HCL [Concomitant]
     Indication: ATTENTION DEFICIT/HYPERACTIVITY DISORDER

REACTIONS (8)
  - ABDOMINAL PAIN LOWER [None]
  - ARTHROPATHY [None]
  - CRYING [None]
  - DEPRESSED MOOD [None]
  - DIZZINESS [None]
  - EMOTIONAL DISORDER [None]
  - FEELING ABNORMAL [None]
  - HEADACHE [None]
